FAERS Safety Report 13735381 (Version 1)
Quarter: 2017Q3

REPORT INFORMATION
  Report Type: Spontaneous
  Country: US (occurrence: US)
  Receive Date: 20170709
  Receipt Date: 20170709
  Transmission Date: 20171127
  Serious: No
  Sender: FDA-Public Use
  Company Number: None

PATIENT
  Sex: Female
  Weight: 96.3 kg

DRUGS (5)
  1. CIPROFLOXACIN. [Suspect]
     Active Substance: CIPROFLOXACIN
     Indication: URINARY TRACT INFECTION
     Dosage: ?          OTHER STRENGTH:MG;QUANTITY:14 TABLET(S);?
     Route: 048
     Dates: start: 20170621, end: 20170627
  2. HYDROCHLOROTHIAZIDE. [Concomitant]
     Active Substance: HYDROCHLOROTHIAZIDE
  3. IBUPROFEN. [Concomitant]
     Active Substance: IBUPROFEN
  4. ROPINIROLE. [Concomitant]
     Active Substance: ROPINIROLE
  5. LISINOPRIL. [Concomitant]
     Active Substance: LISINOPRIL

REACTIONS (4)
  - Swelling [None]
  - Pain in extremity [None]
  - Tenderness [None]
  - Myalgia [None]
